FAERS Safety Report 13350822 (Version 1)
Quarter: 2017Q1

REPORT INFORMATION
  Report Type: Spontaneous
  Country: US (occurrence: US)
  Receive Date: 20170320
  Receipt Date: 20170320
  Transmission Date: 20170429
  Serious: Yes (Disabling, Other)
  Sender: FDA-Public Use
  Company Number: US-BRISTOL-MYERS SQUIBB COMPANY-BMS-2017-022356

PATIENT
  Sex: Female
  Weight: 99.77 kg

DRUGS (1)
  1. COUMADIN [Suspect]
     Active Substance: WARFARIN SODIUM
     Indication: PRODUCT USED FOR UNKNOWN INDICATION
     Dosage: UNK
     Route: 065

REACTIONS (6)
  - Nerve injury [Unknown]
  - Limb injury [Not Recovered/Not Resolved]
  - Muscle injury [Unknown]
  - Foot operation [Unknown]
  - Contusion [Unknown]
  - Epistaxis [Unknown]
